FAERS Safety Report 16651300 (Version 2)
Quarter: 2019Q3

REPORT INFORMATION
  Report Type: Spontaneous
  Country: CA (occurrence: CA)
  Receive Date: 20190731
  Receipt Date: 20190806
  Transmission Date: 20191004
  Serious: Yes (Other)
  Sender: FDA-Public Use
  Company Number: CA-SA-2019SA201463

PATIENT
  Sex: Female

DRUGS (17)
  1. SIMPONI [Suspect]
     Active Substance: GOLIMUMAB
     Dosage: UNK UNK, UNK
     Route: 058
     Dates: start: 2014, end: 2015
  2. ACYCLOVIR [ACICLOVIR] [Concomitant]
     Active Substance: ACYCLOVIR
     Dosage: UNK
  3. ARAVA [Suspect]
     Active Substance: LEFLUNOMIDE
     Dosage: UNK UNK, QD
     Route: 048
     Dates: start: 2014, end: 2014
  4. ZOLOFT [Concomitant]
     Active Substance: SERTRALINE HYDROCHLORIDE
  5. LYRICA [Concomitant]
     Active Substance: PREGABALIN
  6. AERIUS [EBASTINE] [Concomitant]
     Active Substance: EBASTINE
     Indication: SEASONAL ALLERGY
     Dosage: UNK UNK, PRN
     Route: 048
  7. REACTINE [CETIRIZINE HYDROCHLORIDE] [Concomitant]
     Active Substance: CETIRIZINE HYDROCHLORIDE
     Indication: SEASONAL ALLERGY
     Dosage: UNK UNK, QD, PRN
     Route: 048
  8. ZOPICLONE [Concomitant]
     Active Substance: ZOPICLONE
     Dosage: HALF TO 1 TABLET PRN
     Route: 048
  9. PREDNISONE. [Suspect]
     Active Substance: PREDNISONE
     Dosage: UNK UNK, QD
     Route: 048
  10. PLAQUENIL [Suspect]
     Active Substance: HYDROXYCHLOROQUINE SULFATE
     Dosage: 200 MG, BID
     Route: 048
     Dates: start: 2013
  11. ARAVA [Suspect]
     Active Substance: LEFLUNOMIDE
     Dosage: UNK
  12. METHOTREXATE. [Suspect]
     Active Substance: METHOTREXATE
     Dosage: UNK UNK, QW
     Dates: start: 2014, end: 2014
  13. CONSTELLA [Concomitant]
     Active Substance: LINACLOTIDE
     Dosage: 145 MG, QD
     Route: 048
  14. ZOMIG [Concomitant]
     Active Substance: ZOLMITRIPTAN
     Dosage: UNK UNK, PRN
     Route: 048
  15. LEVOFLOXACIN. [Concomitant]
     Active Substance: LEVOFLOXACIN
  16. AMITRIPTYLINE [Concomitant]
     Active Substance: AMITRIPTYLINE
     Dosage: 25 MG, QD
     Route: 048
  17. VITAMIN C [Concomitant]
     Active Substance: ASCORBIC ACID
     Dosage: UNK UNK, PRN
     Route: 048

REACTIONS (8)
  - Drug ineffective [Unknown]
  - White blood cell count decreased [Unknown]
  - Drug hypersensitivity [Unknown]
  - Therapeutic response decreased [Unknown]
  - Drug intolerance [Unknown]
  - Alopecia [Unknown]
  - Abdominal pain upper [Unknown]
  - Sepsis [Unknown]
